FAERS Safety Report 8586463-9 (Version None)
Quarter: 2012Q3

REPORT INFORMATION
  Report Type: 
  Country: None (occurrence: None)
  Receive Date: 20120730
  Receipt Date: 20120713
  Transmission Date: 20120928
  Serious: Yes (Hospitalization)
  Sender: FDA-Public Use
  Company Number: INT_00091_2012

PATIENT
  Age: 65 Year
  Sex: Female

DRUGS (1)
  1. CEFEPIME [Suspect]
     Indication: PRODUCTIVE COUGH
     Dosage: (DF)

REACTIONS (3)
  - MYOCLONUS [None]
  - APHASIA [None]
  - CHOREA [None]
